FAERS Safety Report 6074826-5 (Version None)
Quarter: 2009Q1

REPORT INFORMATION
  Report Type: 
  Country: None (occurrence: None)
  Receive Date: 20090212
  Receipt Date: 20090203
  Transmission Date: 20090719
  Serious: Yes (Other)
  Sender: FDA-Public Use
  Company Number: PHHY2009BR03967

PATIENT
  Age: 47 Year
  Sex: Female

DRUGS (1)
  1. FORASEQ [Suspect]
     Dosage: 12/400
     Route: 048

REACTIONS (2)
  - HYPERSENSITIVITY [None]
  - HYPOAESTHESIA ORAL [None]
